FAERS Safety Report 8238888-9 (Version None)
Quarter: 2012Q1

REPORT INFORMATION
  Report Type: 
  Country: None (occurrence: None)
  Receive Date: 20120327
  Receipt Date: 20120324
  Transmission Date: 20120608
  Serious: Yes (Other)
  Sender: FDA-Public Use
  Company Number: US-PFIZER INC-2012012703

PATIENT
  Sex: Female
  Weight: 54.422 kg

DRUGS (1)
  1. NIFEDIPINE [Suspect]
     Dosage: 30 MG, UNK
     Dates: start: 20111101

REACTIONS (2)
  - EYE HAEMORRHAGE [None]
  - BLOOD PRESSURE INCREASED [None]
